FAERS Safety Report 9419848 (Version 2)
Quarter: 2013Q3

REPORT INFORMATION
  Report Type: Spontaneous
  Country: US (occurrence: US)
  Receive Date: 20130725
  Receipt Date: 20130806
  Transmission Date: 20140515
  Serious: Yes (Hospitalization)
  Sender: FDA-Public Use
  Company Number: US-COVIDIEN/TYCO HEALTHCARE/MALLINCKRODT-T201303751

PATIENT
  Age: 50 Year
  Sex: Male

DRUGS (4)
  1. METHADONE [Suspect]
     Indication: DRUG DEPENDENCE
     Dosage: 10 MG, TID
     Route: 048
     Dates: start: 2010
  2. OXYCONTIN [Concomitant]
     Indication: INJURY
     Dosage: 60 MG, TID
     Route: 048
     Dates: end: 2010
  3. PERCOCET                           /00446701/ [Concomitant]
     Indication: PRODUCT USED FOR UNKNOWN INDICATION
     Dosage: 50 MG, QD
     Route: 048
  4. VALIUM                             /00017001/ [Concomitant]
     Indication: PRODUCT USED FOR UNKNOWN INDICATION
     Dosage: 10 MG, QD
     Route: 048

REACTIONS (5)
  - Pulmonary embolism [Recovered/Resolved]
  - Thrombosis [Recovered/Resolved]
  - Cellulitis [Recovered/Resolved]
  - Tobacco user [Not Recovered/Not Resolved]
  - Sexual dysfunction [Not Recovered/Not Resolved]
